FAERS Safety Report 5099604-5 (Version None)
Quarter: 2006Q3

REPORT INFORMATION
  Report Type: 
  Country: None (occurrence: None)
  Receive Date: 20060906
  Receipt Date: 20060829
  Transmission Date: 20061208
  Serious: Yes (Hospitalization)
  Sender: FDA-Public Use
  Company Number: 234899K06USA

PATIENT
  Age: 49 Year
  Sex: Female
  Weight: 50.8029 kg

DRUGS (3)
  1. REBIF [Suspect]
     Indication: MULTIPLE SCLEROSIS
     Dosage: 44 MCG, 3 IN 1 WEEKS, SUBCUTANEOUS
     Route: 058
     Dates: start: 20040625, end: 20060827
  2. BENADRYL [Concomitant]
  3. BENTYL [Concomitant]

REACTIONS (15)
  - ACTIVITIES OF DAILY LIVING IMPAIRED [None]
  - AMNESIA [None]
  - BLOOD PRESSURE DECREASED [None]
  - COLITIS ULCERATIVE [None]
  - DEHYDRATION [None]
  - GASTROOESOPHAGEAL REFLUX DISEASE [None]
  - MALABSORPTION [None]
  - MALNUTRITION [None]
  - MULTIPLE SCLEROSIS RELAPSE [None]
  - NEUTRALISING ANTIBODIES POSITIVE [None]
  - OPTIC NEURITIS [None]
  - PAIN [None]
  - SCREAMING [None]
  - VISUAL ACUITY REDUCED [None]
  - WEIGHT DECREASED [None]
